FAERS Safety Report 4696386-3 (Version None)
Quarter: 2005Q2

REPORT INFORMATION
  Report Type: 
  Country: None (occurrence: None)
  Receive Date: 20050620
  Receipt Date: 20050614
  Transmission Date: 20051028
  Serious: Yes (Other)
  Sender: FDA-Public Use
  Company Number: USA-2005-0020329

PATIENT
  Age: 31 Year
  Sex: Female

DRUGS (3)
  1. OXYCONTIN [Suspect]
     Dosage: SEE IMAGE
     Route: 048
  2. . [Concomitant]
  3. DILAUDID [Concomitant]

REACTIONS (2)
  - MYOCLONUS [None]
  - RENAL FAILURE [None]
